FAERS Safety Report 24000871 (Version 1)
Quarter: 2024Q2

REPORT INFORMATION
  Report Type: Spontaneous
  Country: FR (occurrence: None)
  Receive Date: 20240621
  Receipt Date: 20240621
  Transmission Date: 20240716
  Serious: Yes (Hospitalization, Other)
  Sender: FDA-Public Use
  Company Number: 2024A143170

PATIENT
  Age: 1 Month
  Sex: Male
  Weight: 5.2 kg

DRUGS (1)
  1. BEYFORTUS [Suspect]
     Active Substance: NIRSEVIMAB-ALIP
     Indication: Immunisation
     Dosage: 1 DF
     Route: 030
     Dates: start: 20231019, end: 20231019

REACTIONS (4)
  - Bronchiolitis [Recovered/Resolved]
  - Respiratory syncytial virus test positive [Recovered/Resolved]
  - Oxygen therapy [Recovered/Resolved]
  - Drug ineffective [Unknown]

NARRATIVE: CASE EVENT DATE: 20231125
